FAERS Safety Report 9776842 (Version 1)
Quarter: 2013Q4

REPORT INFORMATION
  Report Type: Report from Study
  Country: IL (occurrence: IL)
  Receive Date: 20131221
  Receipt Date: 20131221
  Transmission Date: 20140711
  Serious: Yes (Hospitalization)
  Sender: FDA-Public Use
  Company Number: PHHY2013IL148778

PATIENT
  Age: 77 Year
  Sex: Male

DRUGS (2)
  1. SANDOSTATIN LAR [Suspect]
     Indication: CARCINOID TUMOUR
     Dosage: 30 MG, 1 Q4W
     Route: 030
     Dates: start: 20120101
  2. SANDOSTATIN LAR [Suspect]
     Dosage: 30 MG, 1 Q4W
     Route: 030
     Dates: start: 20131216

REACTIONS (2)
  - Catheter site haemorrhage [Unknown]
  - Haemoglobin decreased [Unknown]
